FAERS Safety Report 7462684-3 (Version None)
Quarter: 2011Q2

REPORT INFORMATION
  Report Type: 
  Country: None (occurrence: None)
  Receive Date: 20110506
  Receipt Date: 20110428
  Transmission Date: 20111010
  Serious: Yes (Hospitalization)
  Sender: FDA-Public Use
  Company Number: CH-SANOFI-AVENTIS-2011SA026105

PATIENT
  Sex: Male

DRUGS (2)
  1. PLAVIX [Suspect]
     Indication: ANTIPLATELET THERAPY
     Route: 048
     Dates: end: 20110201
  2. ARCOXIA [Interacting]
     Route: 048
     Dates: end: 20110201

REACTIONS (7)
  - GASTROINTESTINAL HAEMORRHAGE [None]
  - GENERAL PHYSICAL HEALTH DETERIORATION [None]
  - DRUG INTERACTION [None]
  - RIGHT VENTRICULAR FAILURE [None]
  - MELAENA [None]
  - ABDOMINAL PAIN UPPER [None]
  - HYPOCHROMIC ANAEMIA [None]
